FAERS Safety Report 21849002 (Version 1)
Quarter: 2023Q1

REPORT INFORMATION
  Report Type: Spontaneous
  Country: US (occurrence: None)
  Receive Date: 20230110
  Receipt Date: 20230110
  Transmission Date: 20230418
  Serious: Yes (Hospitalization)
  Sender: FDA-Public Use
  Company Number: None

PATIENT
  Sex: Male
  Weight: 56.7 kg

DRUGS (11)
  1. LENALIDOMIDE [Suspect]
     Active Substance: LENALIDOMIDE
     Indication: Plasma cell myeloma
     Dosage: OTHER FREQUENCY : 21 DAYS ON, 7D OFF;?
  2. ASPIRIN [Concomitant]
     Active Substance: ASPIRIN
  3. ATORVASTATIN [Concomitant]
     Active Substance: ATORVASTATIN
  4. CLONIDINE [Concomitant]
     Active Substance: CLONIDINE
  5. NIFEDIPINE [Concomitant]
     Active Substance: NIFEDIPINE
  6. NEBIVOLOL [Concomitant]
     Active Substance: NEBIVOLOL
  7. NORCO [Concomitant]
     Active Substance: ACETAMINOPHEN\HYDROCODONE BITARTRATE
  8. PREDNISONE [Concomitant]
     Active Substance: PREDNISONE
  9. STOOL SOFTENER (DOCUSATE) [Concomitant]
     Active Substance: DOCUSATE
  10. TAMSULOSIN [Concomitant]
     Active Substance: TAMSULOSIN
  11. XELJANZ [Concomitant]
     Active Substance: TOFACITINIB CITRATE

REACTIONS (2)
  - Pneumonia [None]
  - Haematological infection [None]
